FAERS Safety Report 24654467 (Version 3)
Quarter: 2025Q1

REPORT INFORMATION
  Report Type: Spontaneous
  Country: CA (occurrence: CA)
  Receive Date: 20241122
  Receipt Date: 20250128
  Transmission Date: 20250409
  Serious: Yes (Other)
  Sender: STALLERGENES
  Company Number: CA-STALCOR-2024-AER-02637

PATIENT
  Age: 27 Year
  Sex: Male

DRUGS (18)
  1. AGROSTIS GIGANTEA POLLEN\DACTYLIS GLOMERATA POLLEN\PHLEUM PRATENSE POL [Suspect]
     Active Substance: AGROSTIS GIGANTEA POLLEN\DACTYLIS GLOMERATA POLLEN\PHLEUM PRATENSE POLLEN\POA PRATENSIS POLLEN
     Indication: Seasonal allergy
     Route: 058
  2. AGROSTIS GIGANTEA POLLEN\DACTYLIS GLOMERATA POLLEN\PHLEUM PRATENSE POL [Suspect]
     Active Substance: AGROSTIS GIGANTEA POLLEN\DACTYLIS GLOMERATA POLLEN\PHLEUM PRATENSE POLLEN\POA PRATENSIS POLLEN
     Indication: Rhinitis allergic
  3. STANDARDIZED CAT HAIR [Suspect]
     Active Substance: FELIS CATUS HAIR
     Indication: Seasonal allergy
     Route: 058
  4. STANDARDIZED CAT HAIR [Suspect]
     Active Substance: FELIS CATUS HAIR
     Indication: Rhinitis allergic
  5. POLLENS - TREES, TREE MIX 11 [Suspect]
     Active Substance: ACER SACCHARUM POLLEN\BETULA NIGRA POLLEN\CARYA OVATA POLLEN\FAGUS GRANDIFOLIA POLLEN\FRAXINUS AMERI
     Indication: Seasonal allergy
     Route: 058
  6. POLLENS - TREES, TREE MIX 11 [Suspect]
     Active Substance: ACER SACCHARUM POLLEN\BETULA NIGRA POLLEN\CARYA OVATA POLLEN\FAGUS GRANDIFOLIA POLLEN\FRAXINUS AMERI
     Indication: Rhinitis allergic
  7. DOG EPITHELIA [Suspect]
     Active Substance: CANIS LUPUS FAMILIARIS SKIN
     Indication: Seasonal allergy
     Route: 058
  8. DOG EPITHELIA [Suspect]
     Active Substance: CANIS LUPUS FAMILIARIS SKIN
     Indication: Rhinitis allergic
  9. MIXED RAGWEED [Suspect]
     Active Substance: AMBROSIA ARTEMISIIFOLIA POLLEN\AMBROSIA TRIFIDA POLLEN
     Indication: Seasonal allergy
     Route: 058
  10. MIXED RAGWEED [Suspect]
     Active Substance: AMBROSIA ARTEMISIIFOLIA POLLEN\AMBROSIA TRIFIDA POLLEN
     Indication: Rhinitis allergic
  11. COMMON WEED MIX [Suspect]
     Active Substance: AMARANTHUS RETROFLEXUS POLLEN\CHENOPODIUM ALBUM POLLEN\PLANTAGO LANCEOLATA POLLEN\SALSOLA KALI POLLE
     Indication: Seasonal allergy
     Route: 058
  12. COMMON WEED MIX [Suspect]
     Active Substance: AMARANTHUS RETROFLEXUS POLLEN\CHENOPODIUM ALBUM POLLEN\PLANTAGO LANCEOLATA POLLEN\SALSOLA KALI POLLE
     Indication: Rhinitis allergic
  13. STERILE DILUENT FOR ALLERGENIC EXTRACT (PHENOL) [Suspect]
     Active Substance: PHENOL
     Indication: Seasonal allergy
     Route: 058
  14. STERILE DILUENT FOR ALLERGENIC EXTRACT (PHENOL) [Suspect]
     Active Substance: PHENOL
     Indication: Rhinitis allergic
  15. STERILE DILUENT FOR ALLERGENIC EXTRACT (PHENOL) [Suspect]
     Active Substance: PHENOL
     Indication: Seasonal allergy
     Route: 058
  16. STERILE DILUENT FOR ALLERGENIC EXTRACT (PHENOL) [Suspect]
     Active Substance: PHENOL
     Indication: Rhinitis allergic
  17. STERILE DILUENT FOR ALLERGENIC EXTRACT (PHENOL) [Suspect]
     Active Substance: PHENOL
     Indication: Seasonal allergy
     Route: 058
  18. STERILE DILUENT FOR ALLERGENIC EXTRACT (PHENOL) [Suspect]
     Active Substance: PHENOL
     Indication: Rhinitis allergic

REACTIONS (13)
  - Flushing [Recovered/Resolved]
  - Sinus congestion [Recovered/Resolved]
  - Swelling face [Recovered/Resolved]
  - Throat tightness [Recovered/Resolved]
  - Dyspnoea [Recovered/Resolved]
  - Anxiety [Unknown]
  - Anaphylactic reaction [Unknown]
  - Dyspnoea [Unknown]
  - Dysphagia [Unknown]
  - Urticaria [Unknown]
  - Wrong dose [Recovered/Resolved]
  - Product packaging confusion [Recovered/Resolved]
  - Product monitoring error [Unknown]
